FAERS Safety Report 6106286-X (Version None)
Quarter: 2009Q1

REPORT INFORMATION
  Report Type: 
  Country: None (occurrence: None)
  Receive Date: 20090306
  Receipt Date: 20090303
  Transmission Date: 20090719
  Serious: Yes (Other)
  Sender: FDA-Public Use
  Company Number: US-ASTRAZENECA-2009UW05812

PATIENT
  Age: 39 Year
  Sex: Male

DRUGS (3)
  1. CRESTOR [Suspect]
     Route: 048
  2. FENOGLIDE [Suspect]
  3. DIABETIC MEDS [Concomitant]

REACTIONS (1)
  - HAEMATURIA [None]
